FAERS Safety Report 17257113 (Version 1)
Quarter: 2020Q1

REPORT INFORMATION
  Report Type: Spontaneous
  Country: US (occurrence: US)
  Receive Date: 20200109
  Receipt Date: 20200109
  Transmission Date: 20200409
  Serious: Yes (Other)
  Sender: FDA-Public Use
  Company Number: None

PATIENT
  Age: 81 Year
  Sex: Female
  Weight: 57.6 kg

DRUGS (1)
  1. ABRAXANE [Suspect]
     Active Substance: PACLITAXEL
     Indication: BREAST CANCER
     Dosage: ?          OTHER FREQUENCY:WEEKLY;?
     Route: 041
     Dates: start: 20200109

REACTIONS (9)
  - Flushing [None]
  - Infusion related reaction [None]
  - Back pain [None]
  - Chest discomfort [None]
  - Cough [None]
  - Respiratory distress [None]
  - Dyspnoea [None]
  - Stridor [None]
  - Throat tightness [None]

NARRATIVE: CASE EVENT DATE: 20200108
